FAERS Safety Report 26000477 (Version 1)
Quarter: 2025Q4

REPORT INFORMATION
  Report Type: Spontaneous
  Country: US (occurrence: US)
  Receive Date: 20251105
  Receipt Date: 20251105
  Transmission Date: 20260117
  Serious: No
  Sender: ANI
  Company Number: US-ANIPHARMA-2025-US-038194

PATIENT
  Age: 67 Year
  Sex: Male

DRUGS (12)
  1. DIAZEPAM [Concomitant]
     Active Substance: DIAZEPAM
  2. ATORVASTATIN CALCIUM [Concomitant]
     Active Substance: ATORVASTATIN CALCIUM
  3. TRAMADOL HCL [Concomitant]
     Active Substance: TRAMADOL HYDROCHLORIDE
  4. METOPROLOL TARTRATE [Concomitant]
     Active Substance: METOPROLOL TARTRATE
  5. AMLODIPINE BESYLATE [Concomitant]
     Active Substance: AMLODIPINE BESYLATE
  6. GABAPENTIN [Concomitant]
     Active Substance: GABAPENTIN
  7. DULOXETINE HYDROCHLORIDE [Concomitant]
     Active Substance: DULOXETINE HYDROCHLORIDE
  8. ASPIRIN [Concomitant]
     Active Substance: ASPIRIN
  9. PREDNISONE [Concomitant]
     Active Substance: PREDNISONE
  10. FENOFIBRATE [Concomitant]
     Active Substance: FENOFIBRATE
  11. ADALIMUMAB-ADBM [Concomitant]
     Active Substance: ADALIMUMAB-ADBM
  12. CORTICOTROPIN [Suspect]
     Active Substance: CORTICOTROPIN
     Indication: Psoriatic arthropathy
     Route: 058
     Dates: start: 202508

REACTIONS (3)
  - Injection site pain [Unknown]
  - Injection site pruritus [Unknown]
  - Injection site erythema [Unknown]

NARRATIVE: CASE EVENT DATE: 20250801
